FAERS Safety Report 4793723-6 (Version None)
Quarter: 2005Q4

REPORT INFORMATION
  Report Type: 
  Country: None (occurrence: None)
  Receive Date: 20051006
  Receipt Date: 20050923
  Transmission Date: 20060501
  Serious: Yes (Hospitalization, Disabling, Other)
  Sender: FDA-Public Use
  Company Number: 2005119630

PATIENT
  Sex: Male
  Weight: 113.3993 kg

DRUGS (3)
  1. VIAGRA [Suspect]
     Indication: ERECTILE DYSFUNCTION
     Dates: start: 20000101
  2. EFFEXOR (VENLAFAXINE HDYROCHLORIDE) [Suspect]
     Indication: POST-TRAUMATIC STRESS DISORDER
  3. VOLTAREN [Concomitant]

REACTIONS (14)
  - ARTHRITIS BACTERIAL [None]
  - BLOOD PRESSURE FLUCTUATION [None]
  - CHEST CRUSHING [None]
  - DYSSOMNIA [None]
  - JOINT DISLOCATION [None]
  - LUNG INFECTION [None]
  - LUNG INJURY [None]
  - MANIA [None]
  - PAIN [None]
  - POST-TRAUMATIC STRESS DISORDER [None]
  - RIB FRACTURE [None]
  - ROAD TRAFFIC ACCIDENT [None]
  - SINUS CONGESTION [None]
  - WEIGHT DECREASED [None]
